FAERS Safety Report 9452309 (Version 1)
Quarter: 2013Q3

REPORT INFORMATION
  Report Type: Spontaneous
  Country: US (occurrence: None)
  Receive Date: 20130808
  Receipt Date: 20130808
  Transmission Date: 20140515
  Serious: Yes (Hospitalization)
  Sender: FDA-Public Use
  Company Number: None

PATIENT
  Age: 43 Year
  Sex: Male
  Weight: 76.2 kg

DRUGS (2)
  1. TECFIDERA [Suspect]
     Indication: MULTIPLE SCLEROSIS
     Dates: start: 20130527, end: 20130602
  2. TECFIDERA [Suspect]
     Dates: start: 20130603, end: 20130610

REACTIONS (5)
  - Abdominal pain [None]
  - Pyrexia [None]
  - Constipation [None]
  - Dehydration [None]
  - Intussusception [None]
